FAERS Safety Report 9651149 (Version 3)
Quarter: 2016Q3

REPORT INFORMATION
  Report Type: Spontaneous
  Country: US (occurrence: US)
  Receive Date: 20131029
  Receipt Date: 20160822
  Transmission Date: 20161109
  Serious: Yes (Death, Hospitalization, Disabling, Other)
  Sender: FDA-Public Use
  Company Number: US-009507513-1203USA02322

PATIENT
  Sex: Female

DRUGS (5)
  1. FOSAMAX [Suspect]
     Active Substance: ALENDRONATE SODIUM
     Dosage: 70 MG, UNK
     Route: 048
  2. FOSAMAX [Suspect]
     Active Substance: ALENDRONATE SODIUM
     Indication: OSTEOPOROSIS
     Dosage: 10 MG, UNK
     Route: 048
  3. LANSOPRAZOLE. [Concomitant]
     Active Substance: LANSOPRAZOLE
     Dosage: UNK
     Route: 065
     Dates: start: 2000
  4. FOSAMAX [Suspect]
     Active Substance: ALENDRONATE SODIUM
     Indication: OSTEOPOROSIS
     Route: 048
     Dates: start: 200802
  5. ESOMEPRAZOLE [Concomitant]
     Active Substance: ESOMEPRAZOLE
     Dosage: UNK
     Route: 065
     Dates: start: 2000

REACTIONS (23)
  - Blood magnesium decreased [Unknown]
  - Pain [Unknown]
  - Coronary artery disease [Fatal]
  - Hyperlipidaemia [Unknown]
  - Parkinson^s disease [Unknown]
  - Hypokalaemia [Unknown]
  - Asthenia [Unknown]
  - Hypertension [Unknown]
  - Decubitus ulcer [Unknown]
  - Gastrooesophageal reflux disease [Unknown]
  - Dementia [Unknown]
  - Injury [Unknown]
  - Adult failure to thrive [Fatal]
  - Intramedullary rod insertion [Unknown]
  - Low turnover osteopathy [Unknown]
  - Depression [Not Recovered/Not Resolved]
  - Osteopenia [Unknown]
  - Vascular calcification [Unknown]
  - Lower limb fracture [Unknown]
  - Large intestine polyp [Unknown]
  - Dementia Alzheimer^s type [Unknown]
  - Femur fracture [Not Recovered/Not Resolved]
  - Anxiety [Not Recovered/Not Resolved]

NARRATIVE: CASE EVENT DATE: 2000
